FAERS Safety Report 21147381 (Version 1)
Quarter: 2022Q3

REPORT INFORMATION
  Report Type: Spontaneous
  Country: CA (occurrence: CA)
  Receive Date: 20220729
  Receipt Date: 20220729
  Transmission Date: 20221027
  Serious: Yes (Other)
  Sender: FDA-Public Use
  Company Number: CA-PFIZER INC-PV202200031710

PATIENT
  Age: 65 Year
  Sex: Male

DRUGS (19)
  1. CIPROFLOXACIN HYDROCHLORIDE [Interacting]
     Active Substance: CIPROFLOXACIN HYDROCHLORIDE
     Indication: Pneumonia
     Dosage: 500 MG, 2X/DAY
     Route: 048
  2. PHENYTOIN SODIUM [Interacting]
     Active Substance: PHENYTOIN SODIUM
     Indication: Epilepsy
     Dosage: 100 MG, 3X/DAY
     Route: 048
  3. PHENYTOIN SODIUM [Interacting]
     Active Substance: PHENYTOIN SODIUM
     Indication: Schizophrenia
  4. PHENYTOIN SODIUM [Interacting]
     Active Substance: PHENYTOIN SODIUM
     Indication: Organic brain syndrome
  5. CHLORPROMAZINE [Suspect]
     Active Substance: CHLORPROMAZINE
     Indication: Epilepsy
     Dosage: UNK
  6. CHLORPROMAZINE [Suspect]
     Active Substance: CHLORPROMAZINE
     Indication: Schizophrenia
  7. CHLORPROMAZINE [Suspect]
     Active Substance: CHLORPROMAZINE
     Indication: Organic brain syndrome
  8. THIORIDAZINE [Suspect]
     Active Substance: THIORIDAZINE
     Indication: Epilepsy
     Dosage: UNK
  9. THIORIDAZINE [Suspect]
     Active Substance: THIORIDAZINE
     Indication: Schizophrenia
  10. THIORIDAZINE [Suspect]
     Active Substance: THIORIDAZINE
     Indication: Organic brain syndrome
  11. CLONAZEPAM [Concomitant]
     Active Substance: CLONAZEPAM
     Indication: Epilepsy
     Dosage: UNK
  12. CLONAZEPAM [Concomitant]
     Active Substance: CLONAZEPAM
     Indication: Schizophrenia
  13. CLONAZEPAM [Concomitant]
     Active Substance: CLONAZEPAM
     Indication: Organic brain syndrome
  14. LORAZEPAM [Concomitant]
     Active Substance: LORAZEPAM
     Indication: Epilepsy
     Dosage: UNK
  15. LORAZEPAM [Concomitant]
     Active Substance: LORAZEPAM
     Indication: Schizophrenia
  16. LORAZEPAM [Concomitant]
     Active Substance: LORAZEPAM
     Indication: Organic brain syndrome
  17. BENZTROPINE [Concomitant]
     Active Substance: BENZTROPINE
     Indication: Epilepsy
     Dosage: UNK
  18. BENZTROPINE [Concomitant]
     Active Substance: BENZTROPINE
     Indication: Schizophrenia
  19. BENZTROPINE [Concomitant]
     Active Substance: BENZTROPINE
     Indication: Organic brain syndrome

REACTIONS (2)
  - Seizure [Recovered/Resolved]
  - Drug interaction [Unknown]
